FAERS Safety Report 20800813 (Version 3)
Quarter: 2022Q2

REPORT INFORMATION
  Report Type: Spontaneous
  Country: US (occurrence: US)
  Receive Date: 20220509
  Receipt Date: 20220613
  Transmission Date: 20220721
  Serious: No
  Sender: FDA-Public Use
  Company Number: US-PFIZER INC-202200623910

PATIENT
  Age: 43 Year
  Sex: Female
  Weight: 85.261 kg

DRUGS (1)
  1. PREMARIN [Suspect]
     Active Substance: ESTROGENS, CONJUGATED
     Indication: Vulvovaginal dryness
     Dosage: 5 MG, 2X/WEEK
     Dates: start: 202103

REACTIONS (2)
  - Device issue [Unknown]
  - Application site pain [Recovered/Resolved]

NARRATIVE: CASE EVENT DATE: 20220401
